FAERS Safety Report 8848361 (Version 1)
Quarter: 2012Q4

REPORT INFORMATION
  Report Type: 
  Country: US (occurrence: US)
  Receive Date: 20121018
  Receipt Date: 20121018
  Transmission Date: 20130627
  Serious: No
  Sender: FDA-Public Use
  Company Number: US-ASTRAZENECA-2012SE72534

PATIENT
  Age: 64 Year
  Sex: Female

DRUGS (11)
  1. SYMBICORT [Suspect]
     Dosage: 160-4.5 MCG, ONE PUFF TWICE DAILY
     Route: 055
     Dates: start: 20120913
  2. LISINOPRIL [Suspect]
     Route: 048
     Dates: start: 20120905
  3. ASPIRIN LOW STRENGTH [Concomitant]
  4. PLAVIX [Concomitant]
  5. FLUOXETINE HCL [Concomitant]
  6. DULERA [Concomitant]
  7. NEURONTIN [Concomitant]
  8. METOPROLOL TARTRATE [Concomitant]
  9. VENTOLIN HFA [Concomitant]
     Indication: DYSPNOEA
  10. PROVENTIL HFA [Concomitant]
  11. CRESTOR [Concomitant]

REACTIONS (5)
  - Diabetes mellitus [Unknown]
  - Dermatitis contact [Unknown]
  - Hypertension [Unknown]
  - Depression [Unknown]
  - Off label use [Unknown]
